FAERS Safety Report 16958029 (Version 2)
Quarter: 2019Q4

REPORT INFORMATION
  Report Type: Spontaneous
  Country: IT (occurrence: IT)
  Receive Date: 20191024
  Receipt Date: 20191101
  Transmission Date: 20200122
  Serious: Yes (Hospitalization)
  Sender: FDA-Public Use
  Company Number: IT-JNJFOC-20191029835

PATIENT
  Age: 50 Year
  Sex: Male

DRUGS (1)
  1. HALDOL DECANOAS [Suspect]
     Active Substance: HALOPERIDOL DECANOATE
     Indication: PRODUCT USED FOR UNKNOWN INDICATION
     Dosage: ; IN TOTAL
     Route: 030
     Dates: start: 20190607, end: 20190809

REACTIONS (3)
  - Tremor [Unknown]
  - Atrial fibrillation [Unknown]
  - Medication error [Unknown]

NARRATIVE: CASE EVENT DATE: 20190809
